FAERS Safety Report 5780226-5 (Version None)
Quarter: 2008Q2

REPORT INFORMATION
  Report Type: 
  Country: None (occurrence: None)
  Receive Date: 20080620
  Receipt Date: 20080609
  Transmission Date: 20081010
  Serious: Yes (Other)
  Sender: FDA-Public Use
  Company Number: PHHY2008JP06030

PATIENT
  Age: 13 Year
  Sex: Female

DRUGS (3)
  1. VOLTAREN [Suspect]
     Indication: ANTIPYRESIS
     Route: 054
  2. ALPINYL [Suspect]
  3. IBUROFEN [Concomitant]

REACTIONS (1)
  - GASTROENTERITIS [None]
